FAERS Safety Report 17662532 (Version 2)
Quarter: 2020Q2

REPORT INFORMATION
  Report Type: Spontaneous
  Country: US (occurrence: US)
  Receive Date: 20200413
  Receipt Date: 20200415
  Transmission Date: 20200713
  Serious: Yes (Death, Other)
  Sender: FDA-Public Use
  Company Number: US-PFIZER INC-2020149492

PATIENT
  Age: 29 Year
  Sex: Female
  Weight: 58.5 kg

DRUGS (1)
  1. LIDOCAINE HCL [Suspect]
     Active Substance: LIDOCAINE HYDROCHLORIDE
     Indication: ANAESTHESIA
     Dosage: UNK (200 TO 400 MG, PARACERVICAL BLOCK ANESTHESIA)
     Dates: start: 197208

REACTIONS (2)
  - Toxicity to various agents [Fatal]
  - Seizure [Fatal]

NARRATIVE: CASE EVENT DATE: 1972
